FAERS Safety Report 15512670 (Version 1)
Quarter: 2018Q4

REPORT INFORMATION
  Report Type: Spontaneous
  Country: US (occurrence: US)
  Receive Date: 20181017
  Receipt Date: 20181017
  Transmission Date: 20190205
  Serious: Yes (Life-Threatening, Hospitalization)
  Sender: FDA-Public Use
  Company Number: None

PATIENT
  Age: 55 Year
  Sex: Male
  Weight: 98.1 kg

DRUGS (1)
  1. OLARATUMAB [Suspect]
     Active Substance: OLARATUMAB
     Indication: LIPOSARCOMA
     Dosage: ?          OTHER FREQUENCY:ONCE;?
     Route: 042
     Dates: start: 20161222, end: 20161222

REACTIONS (9)
  - Hypokalaemia [None]
  - Arteriospasm coronary [None]
  - Cardiac arrest [None]
  - Rash generalised [None]
  - Rash [None]
  - Hypomagnesaemia [None]
  - Anaphylactic reaction [None]
  - Pulseless electrical activity [None]
  - Ejection fraction decreased [None]

NARRATIVE: CASE EVENT DATE: 20161222
